FAERS Safety Report 12692062 (Version 1)
Quarter: 2016Q3

REPORT INFORMATION
  Report Type: Report from Study
  Country: CA (occurrence: CA)
  Receive Date: 20160827
  Receipt Date: 20160827
  Transmission Date: 20161109
  Serious: Yes (Other)
  Sender: FDA-Public Use
  Company Number: CA-AMGEN-CANSL2016109449

PATIENT
  Age: 61 Year
  Sex: Female

DRUGS (3)
  1. REPATHA [Suspect]
     Active Substance: EVOLOCUMAB
     Indication: BLOOD CHOLESTEROL INCREASED
     Dosage: 140 MG/ 1 ML, UNK
     Route: 065
     Dates: start: 20160816
  2. VITAMIN D [Concomitant]
     Active Substance: CHOLECALCIFEROL
  3. ASA [Concomitant]
     Active Substance: ASPIRIN

REACTIONS (5)
  - Nasopharyngitis [Unknown]
  - Back pain [Unknown]
  - Chest discomfort [Unknown]
  - Urticaria [Recovered/Resolved]
  - Influenza like illness [Unknown]
